FAERS Safety Report 15500800 (Version 2)
Quarter: 2018Q4

REPORT INFORMATION
  Report Type: Spontaneous
  Country: US (occurrence: US)
  Receive Date: 20181015
  Receipt Date: 20181107
  Transmission Date: 20190205
  Serious: No
  Sender: FDA-Public Use
  Company Number: US-BAUSCH-BL-2018-027850

PATIENT
  Sex: Male
  Weight: 65.83 kg

DRUGS (2)
  1. XIFAXAN [Suspect]
     Active Substance: RIFAXIMIN
     Indication: IRRITABLE BOWEL SYNDROME
     Dosage: COUPLE MONTHS AGO
     Route: 048
     Dates: start: 201808, end: 2018
  2. IMODIUM [Concomitant]
     Active Substance: LOPERAMIDE HYDROCHLORIDE
     Indication: PRODUCT USED FOR UNKNOWN INDICATION

REACTIONS (7)
  - Rash [Unknown]
  - Choking [Recovered/Resolved]
  - Treatment noncompliance [Recovered/Resolved]
  - Wrong technique in product usage process [Recovered/Resolved]
  - Product size issue [Recovered/Resolved]
  - Blister [Recovered/Resolved]
  - Product use complaint [Recovered/Resolved]

NARRATIVE: CASE EVENT DATE: 2018
